FAERS Safety Report 7554615-2 (Version None)
Quarter: 2011Q2

REPORT INFORMATION
  Report Type: 
  Country: None (occurrence: None)
  Receive Date: 20110617
  Receipt Date: 20110610
  Transmission Date: 20111010
  Serious: Yes (Hospitalization, Other)
  Sender: FDA-Public Use
  Company Number: US-ABBOTT-11P-163-0731915-00

PATIENT
  Sex: Male
  Weight: 83.082 kg

DRUGS (1)
  1. HUMIRA [Suspect]
     Indication: CROHN'S DISEASE
     Dates: start: 20091201, end: 20110501

REACTIONS (15)
  - VOMITING [None]
  - MOBILITY DECREASED [None]
  - MUSCLE TIGHTNESS [None]
  - LOSS OF CONSCIOUSNESS [None]
  - UNRESPONSIVE TO STIMULI [None]
  - CONVULSION [None]
  - ASTHENIA [None]
  - BLOOD PRESSURE INCREASED [None]
  - CARDIAC FLUTTER [None]
  - APNOEA [None]
  - POSTICTAL STATE [None]
  - FATIGUE [None]
  - CARDIAC STRESS TEST ABNORMAL [None]
  - DYSPNOEA [None]
  - SLOW RESPONSE TO STIMULI [None]
